FAERS Safety Report 4576551-6 (Version None)
Quarter: 2005Q1

REPORT INFORMATION
  Report Type: 
  Country: None (occurrence: None)
  Receive Date: 20050119
  Receipt Date: 20040514
  Transmission Date: 20050727
  Serious: Yes (Hospitalization)
  Sender: FDA-Public Use
  Company Number: A03200401555

PATIENT
  Age: 80 Year
  Sex: Female
  Weight: 15.6037 kg

DRUGS (4)
  1. PLAVIX [Suspect]
     Dosage: ORAL
     Route: 048
     Dates: end: 20040201
  2. VITAMIN D [Concomitant]
  3. CALCIUM CARBONATE [Concomitant]
  4. ZOLEDRONIC ACID [Concomitant]

REACTIONS (2)
  - ASTHENIA [None]
  - HAEMOPTYSIS [None]
